FAERS Safety Report 4964565-3 (Version None)
Quarter: 2006Q1

REPORT INFORMATION
  Report Type: 
  Country: None (occurrence: None)
  Receive Date: 20060331
  Receipt Date: 20060317
  Transmission Date: 20060701
  Serious: Yes (Death, Hospitalization)
  Sender: FDA-Public Use
  Company Number: DEU-2006-0002037

PATIENT
  Age: 58 Year
  Sex: Female
  Weight: 59 kg

DRUGS (4)
  1. HYDROMORPHONE HCL CR CAPSULE (HYDROMORPHONE HYDROCHLORIDE) CR CAPSULE [Suspect]
     Indication: CANCER PAIN
     Dosage: SEE IMAGE
     Route: 048
     Dates: start: 20051215, end: 20051229
  2. HYDROMORPHONE HCL CR CAPSULE (HYDROMORPHONE HYDROCHLORIDE) CR CAPSULE [Suspect]
     Indication: CANCER PAIN
     Dosage: SEE IMAGE
     Route: 048
     Dates: start: 20051230
  3. PALLADONE [Suspect]
     Indication: CANCER PAIN
     Dosage: 1.3 MG, DAILY, ORAL
     Route: 048
     Dates: start: 20051215
  4. METOCLOPRAMIDE [Concomitant]

REACTIONS (4)
  - GENERAL PHYSICAL HEALTH DETERIORATION [None]
  - ILEUS [None]
  - MALIGNANT NEOPLASM PROGRESSION [None]
  - OVARIAN CANCER [None]
